FAERS Safety Report 19411220 (Version 1)
Quarter: 2021Q2

REPORT INFORMATION
  Report Type: Spontaneous
  Country: US (occurrence: US)
  Receive Date: 20210614
  Receipt Date: 20210614
  Transmission Date: 20210717
  Serious: No
  Sender: FDA-Public Use
  Company Number: None

PATIENT
  Sex: Male

DRUGS (11)
  1. ALBUTEROL HFA [Concomitant]
     Active Substance: ALBUTEROL SULFATE
  2. LOSARTAN 25 MG TAB [Concomitant]
     Active Substance: LOSARTAN POTASSIUM
  3. OLANZAPINE 10 MG TAB [Concomitant]
  4. ZOFRAN 8 MG TAB [Concomitant]
  5. IPRATROPIUM?ALBUT MINI NEBS [Concomitant]
  6. OMEPRAZOLE 40 MG CAP [Concomitant]
  7. CETIRIZINE 10 MG TAB [Concomitant]
  8. GLIMEPIRIDE 1 MG TAB [Concomitant]
  9. METFORMIN 1000 MG TAB [Concomitant]
  10. LOMOTIL [Concomitant]
     Active Substance: ATROPINE SULFATE\DIPHENOXYLATE HYDROCHLORIDE
  11. CAPECITABINE 500 MG TAB [Suspect]
     Active Substance: CAPECITABINE
     Indication: COLON CANCER
     Route: 048

REACTIONS (6)
  - Heart rate increased [None]
  - Headache [None]
  - Musculoskeletal chest pain [None]
  - Pain in extremity [None]
  - Diarrhoea [None]
  - Cough [None]
